FAERS Safety Report 9593032 (Version 1)
Quarter: 2013Q3

REPORT INFORMATION
  Report Type: Spontaneous
  Country: US (occurrence: None)
  Receive Date: 20130930
  Receipt Date: 20130930
  Transmission Date: 20140515
  Serious: No
  Sender: FDA-Public Use
  Company Number: 1000047589

PATIENT
  Age: 58 Year
  Sex: Female

DRUGS (4)
  1. LINZESS [Suspect]
     Indication: IRRITABLE BOWEL SYNDROME
     Dosage: 145 MCG (145 MCG, 1 IN 1 D), ORAL
     Route: 048
     Dates: start: 20130802
  2. ESTRADIOL (ESTRADIOL) (ESTRADIOL) [Concomitant]
  3. PRAVASTATIN (PRAVASTATIN) (PRAVASTATIN) [Concomitant]
  4. SINGULAIR (MONTELUKAST SODIUM) (MONTELUKAST SODIUM) [Concomitant]

REACTIONS (2)
  - Diarrhoea [None]
  - Anorectal discomfort [None]
